FAERS Safety Report 16732369 (Version 4)
Quarter: 2019Q4

REPORT INFORMATION
  Report Type: Spontaneous
  Country: ES (occurrence: ES)
  Receive Date: 20190822
  Receipt Date: 20191203
  Transmission Date: 20200122
  Serious: Yes (Other)
  Sender: FDA-Public Use
  Company Number: ES-CELLTRION INC.-2019ES023871

PATIENT

DRUGS (1)
  1. RITUXIMAB (UNKNOWN) [Suspect]
     Active Substance: RITUXIMAB
     Indication: ANTI-NEUTROPHIL CYTOPLASMIC ANTIBODY POSITIVE VASCULITIS
     Dosage: CUMULATIVE DOSE: 1000 (UNITS: NOT REPORTED)
     Route: 065

REACTIONS (3)
  - Product use in unapproved indication [Unknown]
  - Cardiomyopathy [Recovered/Resolved]
  - Systolic dysfunction [Recovered/Resolved]
